FAERS Safety Report 7676025-X (Version None)
Quarter: 2011Q3

REPORT INFORMATION
  Report Type: 
  Country: None (occurrence: None)
  Receive Date: 20110811
  Receipt Date: 20110804
  Transmission Date: 20111222
  Serious: No
  Sender: FDA-Public Use
  Company Number: US-BIOGENIDEC-2011BI029565

PATIENT
  Sex: Female

DRUGS (1)
  1. TYSABRI [Suspect]
     Indication: MULTIPLE SCLEROSIS
     Route: 042
     Dates: start: 20100830, end: 20110706

REACTIONS (8)
  - MOBILITY DECREASED [None]
  - MUSCLE CONTRACTIONS INVOLUNTARY [None]
  - ARTHRALGIA [None]
  - PAIN [None]
  - GAIT DISTURBANCE [None]
  - MULTIPLE SCLEROSIS [None]
  - DRUG INEFFECTIVE [None]
  - CHILLS [None]
